FAERS Safety Report 20334973 (Version 2)
Quarter: 2022Q1

REPORT INFORMATION
  Report Type: Spontaneous
  Country: US (occurrence: None)
  Receive Date: 20220114
  Receipt Date: 20220223
  Transmission Date: 20220423
  Serious: Yes (Hospitalization)
  Sender: FDA-Public Use
  Company Number: 2022A012950

PATIENT
  Age: 60 Year
  Sex: Male
  Weight: 73.5 kg

DRUGS (3)
  1. EVUSHELD [Suspect]
     Active Substance: CILGAVIMAB\TIXAGEVIMAB
     Indication: COVID-19 prophylaxis
     Route: 030
     Dates: start: 20220106
  2. DOCETAXEL [Concomitant]
     Active Substance: DOCETAXEL
     Indication: Metastatic squamous cell carcinoma
     Dosage: 3 OUT OF 4 WEEKS
     Route: 065
  3. DOCETAXEL [Concomitant]
     Active Substance: DOCETAXEL
     Indication: Metastatic squamous cell carcinoma
     Dosage: SECOND DOSE
     Route: 065
     Dates: start: 20220106

REACTIONS (5)
  - Body temperature increased [Recovered/Resolved]
  - Dyspnoea [Unknown]
  - Post procedural swelling [Unknown]
  - Post procedural erythema [Unknown]
  - Chills [Recovered/Resolved]

NARRATIVE: CASE EVENT DATE: 20220106
